FAERS Safety Report 15095084 (Version 12)
Quarter: 2019Q1

REPORT INFORMATION
  Report Type: Report from Study
  Country: US (occurrence: US)
  Receive Date: 20180702
  Receipt Date: 20190319
  Transmission Date: 20190417
  Serious: Yes (Life-Threatening, Hospitalization, Other)
  Sender: FDA-Public Use
  Company Number: US-AMGEN-USASP2018089712

PATIENT
  Age: 45 Year
  Sex: Female

DRUGS (6)
  1. KETAMINE [Concomitant]
     Active Substance: KETAMINE
     Indication: MIGRAINE
     Dosage: UNK
  2. SYNTHROID [Suspect]
     Active Substance: LEVOTHYROXINE SODIUM
     Dosage: 137 MG, UNK
     Route: 065
     Dates: start: 20190202
  3. AIMOVIG [Suspect]
     Active Substance: ERENUMAB-AOOE
     Indication: MIGRAINE
     Dosage: 70 MG, QMO
     Route: 058
     Dates: start: 20180614
  4. SYNTHROID [Suspect]
     Active Substance: LEVOTHYROXINE SODIUM
     Indication: THYROID DISORDER
     Dosage: 125 MG, UNK
     Route: 065
  5. SYNTHROID [Suspect]
     Active Substance: LEVOTHYROXINE SODIUM
     Dosage: 125 MG, UNK
     Route: 065
     Dates: start: 201902
  6. CAFFEINE. [Concomitant]
     Active Substance: CAFFEINE
     Indication: MIGRAINE
     Dosage: UNK

REACTIONS (7)
  - Tremor [Recovering/Resolving]
  - Spinal cord abscess [Not Recovered/Not Resolved]
  - Hypoaesthesia [Not Recovered/Not Resolved]
  - Headache [Recovering/Resolving]
  - Loss of consciousness [Unknown]
  - Fall [Unknown]
  - Diplopia [Unknown]

NARRATIVE: CASE EVENT DATE: 2018
